FAERS Safety Report 5826690-4 (Version None)
Quarter: 2008Q3

REPORT INFORMATION
  Report Type: 
  Country: None (occurrence: None)
  Receive Date: 20080730
  Receipt Date: 20080718
  Transmission Date: 20090109
  Serious: Yes (Other)
  Sender: FDA-Public Use
  Company Number: US-JNJFOC-20080702846

PATIENT
  Sex: Female
  Weight: 78.65 kg

DRUGS (4)
  1. REMICADE [Suspect]
     Indication: RHEUMATOID ARTHRITIS
     Route: 042
  2. REMICADE [Suspect]
     Indication: ANKYLOSING SPONDYLITIS
     Route: 042
  3. OXYCODEINE [Concomitant]
     Indication: PAIN
  4. MORPHINE [Concomitant]
     Indication: PAIN

REACTIONS (19)
  - BONE PAIN [None]
  - BURNING SENSATION [None]
  - DRY MOUTH [None]
  - DYSPHAGIA [None]
  - DYSPNOEA [None]
  - EYE DISORDER [None]
  - FAECES DISCOLOURED [None]
  - FURUNCLE [None]
  - GAIT DISTURBANCE [None]
  - IMPAIRED HEALING [None]
  - INTERVERTEBRAL DISC PROTRUSION [None]
  - PAIN [None]
  - PAIN IN EXTREMITY [None]
  - PYREXIA [None]
  - SENSATION OF FOREIGN BODY [None]
  - SKIN LESION [None]
  - TENDON PAIN [None]
  - TREMOR [None]
  - VISION BLURRED [None]
